FAERS Safety Report 8822650 (Version 1)
Quarter: 2012Q4

REPORT INFORMATION
  Report Type: 
  Country: JP (occurrence: JP)
  Receive Date: 20121003
  Receipt Date: 20121003
  Transmission Date: 20130627
  Serious: Yes (Other)
  Sender: FDA-Public Use
  Company Number: JP-MERCK-1209JPN004749

PATIENT
  Age: 59 Year
  Sex: Male

DRUGS (5)
  1. GASTER [Suspect]
     Dosage: 10 mg, bid
     Route: 048
     Dates: start: 20120810
  2. HARNAL [Suspect]
     Dosage: 0.2 mg, UID qd
     Route: 048
     Dates: start: 20120810
  3. MICARDIS [Suspect]
     Dosage: 40 mg, qd
     Route: 048
     Dates: start: 2006
  4. JANUVIA TABLETS 100MG [Concomitant]
     Dosage: UNK
     Dates: start: 2006
  5. LIVALO [Concomitant]
     Dosage: UNK
     Dates: start: 2006

REACTIONS (1)
  - Ageusia [Unknown]
